FAERS Safety Report 24147210 (Version 1)
Quarter: 2024Q3

REPORT INFORMATION
  Report Type: Spontaneous
  Country: US (occurrence: None)
  Receive Date: 20240726
  Receipt Date: 20240726
  Transmission Date: 20241017
  Serious: Yes (Other)
  Sender: Public
  Company Number: None

PATIENT
  Age: 55 Year
  Sex: Female
  Weight: 79.2 kg

DRUGS (10)
  1. VYEPTI [Suspect]
     Active Substance: EPTINEZUMAB\EPTINEZUMAB-JJMR
     Indication: Migraine
     Dosage: OTHER QUANTITY : 1 INFUSION;?OTHER FREQUENCY : QUARTERLY;?
     Route: 042
  2. VALACYCLOVIR [Concomitant]
     Active Substance: VALACYCLOVIR HYDROCHLORIDE
  3. BUPROPION [Concomitant]
     Active Substance: BUPROPION
  4. Butal/Acetamn/CF [Concomitant]
  5. CYCLOBENZAPRINE [Concomitant]
     Active Substance: CYCLOBENZAPRINE
  6. ESZOPICLONE [Concomitant]
     Active Substance: ESZOPICLONE
  7. METHYLCOBALAMIN [Concomitant]
     Active Substance: METHYLCOBALAMIN
  8. PRASTERONE [Concomitant]
     Active Substance: PRASTERONE
  9. VITAMIN D3 [Concomitant]
     Active Substance: CHOLECALCIFEROL
  10. Comfrey Ointment [Concomitant]

REACTIONS (14)
  - Complication associated with device [None]
  - Procedural complication [None]
  - Infusion site extravasation [None]
  - Infusion site rash [None]
  - Rash [None]
  - Rash pruritic [None]
  - Blister [None]
  - Sensitive skin [None]
  - Skin exfoliation [None]
  - Swelling [None]
  - Tenderness [None]
  - Post procedural discomfort [None]
  - Adverse drug reaction [None]
  - Chemical burn [None]

NARRATIVE: CASE EVENT DATE: 20240626
